FAERS Safety Report 18300729 (Version 1)
Quarter: 2020Q3

REPORT INFORMATION
  Report Type: Spontaneous
  Country: US (occurrence: US)
  Receive Date: 20200923
  Receipt Date: 20200923
  Transmission Date: 20201103
  Serious: No
  Sender: FDA-Public Use
  Company Number: None

PATIENT
  Age: 44 Year
  Sex: Male
  Weight: 83 kg

DRUGS (2)
  1. FLUTICASONE (FLUTICASONE PROPIONATE 50MCG/SPRAY, SOLN, NASAL, 16GM) [Suspect]
     Active Substance: FLUTICASONE PROPIONATE
     Indication: SINUSITIS
     Dates: start: 20160404, end: 20200827
  2. FLUTICASONE (FLUTICASONE PROPIONATE 50MCG/SPRAY, SOLN, NASAL, 16GM) [Suspect]
     Active Substance: FLUTICASONE PROPIONATE
     Indication: RHINITIS ALLERGIC
     Dates: start: 20160404, end: 20200827

REACTIONS (1)
  - Therapeutic response decreased [None]

NARRATIVE: CASE EVENT DATE: 20200827
